FAERS Safety Report 9547651 (Version 4)
Quarter: 2014Q1

REPORT INFORMATION
  Report Type: Spontaneous
  Country: FR (occurrence: None)
  Receive Date: 20130920
  Receipt Date: 20140109
  Transmission Date: 20141002
  Serious: Yes (Death, Hospitalization, Other)
  Sender: FDA-Public Use
  Company Number: SYM-2013-10767

PATIENT
  Age: 41 Year
  Sex: Female

DRUGS (51)
  1. FLAGYL [Suspect]
     Indication: PRODUCT USED FOR UNKNOWN INDICATION
     Route: 042
     Dates: start: 20130712, end: 20130812
  2. LARGACTIL (CHLORPROMAZINE) (CHLORPROMAZINE) [Suspect]
     Indication: PRODUCT USED FOR UNKNOWN INDICATION
     Dosage: 1 DOSAGE FORMS, DAILY
     Dates: start: 20130619, end: 20130709
  3. EXACYL (TRANEXAMIC ACID) (TRANEXAMIC ACID) [Suspect]
     Indication: PRODUCT USED FOR UNKNOWN INDICATION
     Dosage: 1 DOSAGE FORMS, 3 IN 1 D
     Dates: start: 20130727, end: 20130812
  4. FORTUM (CEFTAZIDIME) (INJECTION) (CEFTAZIDIME) [Suspect]
     Indication: PRODUCT USED FOR UNKNOWN INDICATION
     Dosage: 1 DOSAGE FORMS, 4 IN 1 D
     Dates: start: 20130621, end: 20130809
  5. GENTAMICIN SULFATE (GENTAMICIN SULFATE) (GENTAMICIN SULFATE) [Suspect]
     Indication: PRODUCT USED FOR UNKNOWN INDICATION
     Route: 042
     Dates: start: 20130809, end: 20130811
  6. NOXAFIL (POSACONAZOLE) (POSACONAZOLE) [Suspect]
     Indication: PRODUCT USED FOR UNKNOWN INDICATION
     Route: 048
     Dates: start: 20130619, end: 20130708
  7. CANCIDAS (CASPOFUNGIN ACETATE) (CASPOFUNGIN ACETATE) [Suspect]
     Indication: PRODUCT USED FOR UNKNOWN INDICATION
     Dosage: IV (NOT OTHERWISE SPECIFIED)
     Route: 042
     Dates: start: 20130709, end: 20130709
  8. AMBISOME (AMPHOTERICIN B LIPOSOME) (AMPHOTERICIN B, LIPOSOME) [Suspect]
     Indication: PRODUCT USED FOR UNKNOWN INDICATION
     Dosage: 1I80 MG, DAILY, INTRAVENOUS (NOT OTHERWISE SPECIFIED)
     Route: 042
     Dates: start: 20130709, end: 20130811
  9. BACTRIM (BACTRIM) (SULFAMETHOXAZOLE, TRIMETHOPRIM) [Suspect]
     Indication: PRODUCT USED FOR UNKNOWN INDICATION
     Dosage: 2 DOSAGE FORMS, 3 IN 1 WK, INTRAVENOUS (NOT OTHERWISE SPECIFIED)
     Route: 042
     Dates: start: 20130724, end: 20130809
  10. FOLINIC ACID (FOLINIC ACID) (FOLINIC ACID) [Suspect]
     Indication: PRODUCT USED FOR UNKNOWN INDICATION
     Dosage: 50 MG, 3 IN 1 WK, INTRAVENOUS (NOT OTHERWISE SPECIFIED)
     Route: 042
     Dates: start: 20130724, end: 20130809
  11. ZELITREX (VALACICLOVIR HYDROCHLORIDE) (VALACICLOVIR HYDROCHLORIDE) [Suspect]
     Indication: PRODUCT USED FOR UNKNOWN INDICATION
     Dosage: 500 MG, 2 IN 1 D,  INTRAVENOUS (NOT OTHERWISE SPECIFIED)
     Route: 042
     Dates: start: 20130709, end: 20130813
  12. CYMEVAN (GANCICLOVIR SODIUM) (GANCICLOVIR SODIUM) [Suspect]
     Indication: PRODUCT USED FOR UNKNOWN INDICATION
     Dosage: 350 MG, 2 IN 1 D, INTRAVENOIS (NOT OTHERWISE SEPCIFIED)
     Route: 042
     Dates: start: 20130726, end: 20130813
  13. FOSCAVIR (FOSCARNET SODIUM ) (SOLUTION FOR INFUSION) (FOSCARNET SODIUM) [Suspect]
     Indication: PRODUCT USED FOR UNKNOWN INDICATION
     Dosage: 1 DOSAGE FORMS, 2 IN 1 D, BID
     Dates: start: 20130808
  14. CLAIRYG [Suspect]
     Indication: PRODUCT USED FOR UNKNOWN INDICATION
     Dosage: INTRAVANEOUS (NOT OTHERWISE SPECIFIED)
     Route: 042
  15. INEXIUM [Suspect]
     Indication: PRODUCT USED FOR UNKNOWN INDICATION
     Route: 042
     Dates: start: 20130709, end: 20130813
  16. SPASFON (SPASFON) (INJECTION) (PHLOROGLUCINOL) [Suspect]
     Indication: PRODUCT USED FOR UNKNOWN INDICATION
     Dosage: 2 DOSAGES FORMS, 3 IN 1 D, INTRAVENOUS (NOT OTHERWISE SPECIFIED)
     Route: 042
     Dates: start: 20130619
  17. DELURSAN (URSODEOXYCHOLIC ACID) TABLET [Suspect]
     Indication: PRODUCT USED FOR UNKNOWN INDICATION
     Dosage: 3 DOSAGES FORMS, 2 IN 1 D, ORAL
     Route: 048
     Dates: start: 20130605, end: 20130708
  18. DEFIBROTIDE (DEFIBROTIDE) (DEFIBROTIDE) [Suspect]
     Indication: PRODUCT USED FOR UNKNOWN INDICATION
     Route: 042
     Dates: start: 20130605, end: 20130812
  19. TRANXENE (CLORAZEPATE DIPOTASSIUM) (CAPSULES) (CLORAZEPATE DIPOTASSIUM) [Suspect]
     Indication: PRODUCT USED FOR UNKNOWN INDICATION
     Route: 048
     Dates: start: 20130622, end: 20130709
  20. OXYNORM (OXYCODONE HYDROCHLORIDE) (OXYCODONE HYDROCHLORIDE) [Suspect]
     Indication: PRODUCT USED FOR UNKNOWN INDICATION
     Dosage: INTRAVENOUS (NOT OTHERWISE SPECIFIED)
     Route: 042
     Dates: start: 20130619
  21. PERFALGAN [Suspect]
     Indication: PRODUCT USED FOR UNKNOWN INDICATION
     Route: 042
     Dates: start: 20130710, end: 20130812
  22. SOLUMEDROL (METHYLPREDNISOLONE SODIUM SUCCINATE ) (METHYLPREDNISOLONE SODIUM SUCCINATE) [Suspect]
     Indication: PRODUCT USED FOR UNKNOWN INDICATION
     Dosage: 140 MG, DAILY, INTRAVENOUS (NOT OTHERWISE SPECIFIED)
     Route: 042
     Dates: start: 20130710
  23. ULTIVA (REMIFENTANIL HYDROCHLORIDE) (REMIFENTANIL?HYDROCHLORIDE) [Suspect]
     Indication: PRODUCT USED FOR UNKNOWN INDICATION
     Dates: start: 20130714, end: 20130717
  24. NOCTAMIDE [Suspect]
     Indication: PRODUCT USED FOR UNKNOWN INDICATION
     Route: 048
     Dates: start: 20130605, end: 20130708
  25. LASILIX (FUROSEMIDE) (FUROSEMIDE) [Suspect]
     Indication: PRODUCT USED FOR UNKNOWN INDICATION
     Route: 048
     Dates: start: 20130716, end: 20130809
  26. HEPARIN SODIUM (HEPARIN SODIUM) [Suspect]
     Indication: PRODUCT USED FOR UNKNOWN INDICATION
     Dosage: 7000 MILLIUNIT
     Dates: start: 20130605
  27. GRANOCYTE (LENOGRASTIM) (INJECTION) (LENOGRASTIME) [Suspect]
     Indication: PRODUCT USED FOR UNKNOWN INDICATION
     Route: 042
     Dates: start: 20130807
  28. COLISTIN [Concomitant]
  29. VANCOMYCIN HYDROCHLORIDE [Concomitant]
  30. CIFLOX (CIPROFLOXACIN) (CIPROFLOXACIN) [Concomitant]
  31. TARGOCID (TEICOPLANIN) (TEICOPLANIN) [Concomitant]
  32. MYCOSTATINE (NYSTATIN) (NYSTATIN) [Concomitant]
  33. TRIFLUCAN (FLUCONAZOLE) (FLUCONAZOLE) [Concomitant]
  34. ZOVIRAX (ACICLOVIR) (ACICLOVIR) [Concomitant]
  35. METHOTREXATE (METHOTREXATE) (METHOTREXATE) [Concomitant]
  36. ELVORINE (CALCIUM LEVOFOLINATE) (CALCIUM LEVOFOLINATE) [Concomitant]
  37. SANDIMMUN (CICLOSPORIN) (CICLOSPRIN) [Concomitant]
  38. MOPRAL (OMEPRAZOLE) (OMEPRAZOLE) [Concomitant]
  39. OGASTORO (LANSOPRAZOLE) (LANSOPRAZOLE) [Concomitant]
  40. GELOX (GELOX) (MAGNESIUM HYDROXIDE, MONTMORILLONITE, ALUMINIUM HYDROXIDE) [Concomitant]
  41. SMECTA (DIOSMECTITE) (DIOSMECTITE) [Concomitant]
  42. LUTERAN (CHLORMADINONE ACETATE) (CHLORMADINONE ACETATE) [Concomitant]
  43. LEXOMIL (BROMAZEPAM) (BROMAZEPAM) [Concomitant]
  44. ZOPHREN (ONDANSETRON HYDROCHLORIDE ) (ONDANSETRON HYDROCHLORIDE) [Concomitant]
  45. PRIMPERAN (METOCLOPRAMIDE HYDROCHLORIDE0 (METOCLOPRAMIDE HYDROCHLORIDE) [Concomitant]
  46. ACUPAN (NEFOPAM) (NEFOPAM) [Concomitant]
  47. TIORFAN (ACETORPHAN) (ACETORPHAN) [Concomitant]
  48. LEVOCARNIL (LEVOCARNIITINE) (LEVOCARNITINE) [Concomitant]
  49. ATARAX [Suspect]
     Indication: ILL-DEFINED DISORDER
     Route: 048
     Dates: start: 20130714
  50. SEROPLEX (ESCITALOPRAM OXALATE) (ESCITALOPRAM OXALATE) [Suspect]
     Indication: ILL-DEFINED DISORDER
     Route: 048
     Dates: start: 20130721
  51. CERIS [Suspect]
     Indication: ILL-DEFINED DISORDER
     Route: 048
     Dates: start: 20130807

REACTIONS (5)
  - Toxic epidermal necrolysis [None]
  - Graft versus host disease in intestine [None]
  - Renal failure acute [None]
  - Hepatitis fulminant [None]
  - Multi-organ failure [None]
